FAERS Safety Report 6500843-4 (Version None)
Quarter: 2009Q4

REPORT INFORMATION
  Report Type: 
  Country: None (occurrence: None)
  Receive Date: 20091216
  Receipt Date: 20090323
  Transmission Date: 20100525
  Serious: No
  Sender: FDA-Public Use
  Company Number: A0774735A

PATIENT
  Age: 44 Year
  Sex: Male

DRUGS (1)
  1. COMMIT [Suspect]
     Dates: end: 20090316

REACTIONS (5)
  - ABDOMINAL DISCOMFORT [None]
  - ABDOMINAL DISTENSION [None]
  - ABDOMINAL PAIN UPPER [None]
  - DYSPEPSIA [None]
  - MUSCULOSKELETAL CHEST PAIN [None]
